FAERS Safety Report 4853507-7 (Version None)
Quarter: 2005Q4

REPORT INFORMATION
  Report Type: 
  Country: None (occurrence: None)
  Receive Date: 20051212
  Receipt Date: 20051124
  Transmission Date: 20060501
  Serious: Yes (Death)
  Sender: FDA-Public Use
  Company Number: JP200511002974

PATIENT
  Age: 79 Year
  Sex: Female

DRUGS (4)
  1. RALOXIFENE HCL [Suspect]
     Indication: OSTEOPOROSIS POSTMENOPAUSAL
     Dosage: 60 MG, DAILY (1/D), ORAL
     Route: 048
     Dates: start: 20050425, end: 20050718
  2. CONIEL (BENIDIPINE HYDROCHLORIDE) TABLET [Concomitant]
  3. CONAN (QUINAPRIL HYDROCHLORIDE) TABLET [Concomitant]
  4. LENDORMIN (BROTIZOLAM) TABLET [Concomitant]

REACTIONS (1)
  - DEATH [None]
